FAERS Safety Report 6446394-7 (Version None)
Quarter: 2009Q4

REPORT INFORMATION
  Report Type: 
  Country: None (occurrence: None)
  Receive Date: 20091116
  Receipt Date: 20091029
  Transmission Date: 20100525
  Serious: Yes (Other)
  Sender: FDA-Public Use
  Company Number: 0001

PATIENT
  Sex: Female
  Weight: 83.9154 kg

DRUGS (6)
  1. AB-OTIC SOLUTION [Suspect]
     Indication: PAIN
     Dosage: 2-4DROP EVERY 4 HRS, 001/1 DOSE
     Route: 001
  2. DANAZOL [Concomitant]
  3. ELMIRON [Concomitant]
  4. HYRDOXYZINE [Concomitant]
  5. ALLEGRA [Concomitant]
  6. NASONEX [Concomitant]

REACTIONS (1)
  - HYPERSENSITIVITY [None]
